FAERS Safety Report 7438128-4 (Version None)
Quarter: 2011Q2

REPORT INFORMATION
  Report Type: 
  Country: None (occurrence: None)
  Receive Date: 20110426
  Receipt Date: 20110418
  Transmission Date: 20111010
  Serious: Yes (Hospitalization)
  Sender: FDA-Public Use
  Company Number: US-PFIZER INC-2011070600

PATIENT
  Sex: Female
  Weight: 49.8 kg

DRUGS (10)
  1. CLINDAMYCIN [Concomitant]
     Indication: CELLULITIS
     Dosage: 300 MG, 3X/DAY
     Route: 048
     Dates: start: 20110317, end: 20110326
  2. DILAUDID [Concomitant]
     Indication: PAIN
     Dosage: 8 MG, 4X/DAY
     Route: 048
     Dates: start: 20060101
  3. PROTONIX [Concomitant]
     Indication: GASTROOESOPHAGEAL REFLUX DISEASE
     Dosage: 40 MG, QHS
     Route: 048
     Dates: start: 20110120
  4. COMPAZINE [Concomitant]
     Indication: NAUSEA
     Dosage: 10 MG, Q6HRS
     Route: 048
     Dates: start: 20110128
  5. ATENOLOL [Concomitant]
     Indication: HYPERTENSION
     Dosage: 50 MG, 1X/DAY
     Route: 048
     Dates: start: 20060101
  6. MARINOL [Concomitant]
     Indication: NAUSEA
     Dosage: 5 MG, 2X/DAY
     Route: 048
     Dates: start: 20110203
  7. CYMBALTA [Concomitant]
     Indication: DEPRESSION
     Dosage: 30 MG, QOD
     Route: 048
     Dates: start: 20060101
  8. MARINOL [Concomitant]
     Indication: APPETITE DISORDER
  9. ZOFRAN [Concomitant]
     Indication: NAUSEA
     Dosage: 4 MG, 3X/DAY
     Route: 048
     Dates: start: 20110128
  10. TEMSIROLIMUS [Suspect]
     Indication: SYNOVIAL SARCOMA
     Dosage: 15 MG/M2, WEEKLY
     Route: 042
     Dates: start: 20101021, end: 20110331

REACTIONS (1)
  - PLEURAL EFFUSION [None]
